FAERS Safety Report 8176593-8 (Version None)
Quarter: 2012Q1

REPORT INFORMATION
  Report Type: 
  Country: None (occurrence: None)
  Receive Date: 20120301
  Receipt Date: 20120222
  Transmission Date: 20120608
  Serious: Yes (Other)
  Sender: FDA-Public Use
  Company Number: US-JNJFOC-20120211812

PATIENT
  Sex: Female
  Weight: 84.82 kg

DRUGS (1)
  1. REMICADE [Suspect]
     Indication: RHEUMATOID ARTHRITIS
     Route: 042

REACTIONS (3)
  - THROAT TIGHTNESS [None]
  - HYPERSENSITIVITY [None]
  - INFUSION RELATED REACTION [None]
